FAERS Safety Report 4917652-X (Version None)
Quarter: 2006Q1

REPORT INFORMATION
  Report Type: 
  Country: None (occurrence: None)
  Receive Date: 20060215
  Receipt Date: 20060207
  Transmission Date: 20060701
  Serious: Yes (Other)
  Sender: FDA-Public Use
  Company Number: USA-2006-0022097

PATIENT
  Age: 77 Year
  Sex: Male
  Weight: 70.7 kg

DRUGS (11)
  1. OXYCONTIN [Suspect]
     Indication: PAIN
     Dosage: SEE IMAGE
     Route: 048
     Dates: start: 20050225
  2. OXYCONTIN [Suspect]
     Indication: PAIN
     Dosage: SEE IMAGE
     Route: 048
     Dates: start: 20050517
  3. TOPROL-XL [Concomitant]
  4. COMBIVENT [Concomitant]
  5. COZAAR [Concomitant]
  6. PREVACID [Concomitant]
  7. ACETYLSALICYLIC ACID SRT [Concomitant]
  8. ALBUTEROL [Concomitant]
  9. HYDROCHLOROTHIAZIDE [Concomitant]
  10. CADUET [Concomitant]
  11. PROPOXYPHENE HYDROCHLORIDE CAP [Concomitant]

REACTIONS (5)
  - ANXIETY [None]
  - HALLUCINATION [None]
  - INSOMNIA [None]
  - NIGHTMARE [None]
  - SUICIDAL IDEATION [None]
